FAERS Safety Report 14672535 (Version 4)
Quarter: 2021Q1

REPORT INFORMATION
  Report Type: Spontaneous
  Country: DE (occurrence: DE)
  Receive Date: 20180323
  Receipt Date: 20210211
  Transmission Date: 20210419
  Serious: Yes (Death, Hospitalization, Other)
  Sender: FDA-Public Use
  Company Number: DE-SUN PHARMACEUTICAL INDUSTRIES LTD-2018RR-167903

PATIENT
  Age: 86 Year
  Sex: Male
  Weight: 55 kg

DRUGS (16)
  1. VALDOXAN [Suspect]
     Active Substance: AGOMELATINE
     Indication: SLEEP DISORDER
     Dosage: 25 MG, QD
     Route: 048
     Dates: start: 20171127, end: 20180115
  2. AMLODIPINE [Concomitant]
     Active Substance: AMLODIPINE BESYLATE
     Indication: HYPERTENSION
     Dosage: 5 MG, QD
     Route: 065
  3. COLECALCIFEROL [Concomitant]
     Active Substance: CHOLECALCIFEROL
     Indication: PROPHYLAXIS
     Dosage: 1 DF, EVERY 1 WEEK
     Route: 065
  4. VALDOXAN [Suspect]
     Active Substance: AGOMELATINE
     Indication: OFF LABEL USE
     Dosage: UNK UNK, DAILY
     Route: 065
  5. VALDOXAN [Suspect]
     Active Substance: AGOMELATINE
     Indication: OFF LABEL USE
     Dosage: 25 MG, QD
     Route: 048
     Dates: start: 20171127, end: 20180115
  6. VALSARTAN. [Concomitant]
     Active Substance: VALSARTAN
     Indication: HYPERTENSION
     Dosage: 80 MG, QD
     Route: 048
  7. METAMIZOLE [Concomitant]
     Active Substance: METAMIZOLE
     Indication: PAIN
     Dosage: 1 DF, PRN
     Route: 065
  8. VALSARTAN. [Concomitant]
     Active Substance: VALSARTAN
     Indication: HYPERTENSION
     Dosage: 80 MG, QD
     Route: 048
  9. COLECALCIFEROL [Concomitant]
     Active Substance: CHOLECALCIFEROL
     Dosage: 1 DF, EVERY 1 WEEK
     Route: 065
  10. PHENPROCOUMON [Concomitant]
     Active Substance: PHENPROCOUMON
     Route: 065
  11. DONEPEZIL. [Suspect]
     Active Substance: DONEPEZIL
     Indication: SLEEP DISORDER
     Dosage: 10 MG, QD
     Route: 048
     Dates: start: 20171127, end: 20180115
  12. VALDOXAN [Suspect]
     Active Substance: AGOMELATINE
     Dosage: ()
     Route: 048
  13. PHENPROCOUMON [Concomitant]
     Active Substance: PHENPROCOUMON
     Indication: ATRIAL FIBRILLATION
     Dosage: 1 DF, PRN
     Route: 065
  14. AMLODIPINE [Concomitant]
     Active Substance: AMLODIPINE BESYLATE
     Indication: HYPERTENSION
     Dosage: 5 MG, QD
     Route: 065
  15. VALDOXAN [Suspect]
     Active Substance: AGOMELATINE
     Dosage: ()
     Route: 065
  16. METAMIZOLE [Concomitant]
     Active Substance: METAMIZOLE
     Route: 065

REACTIONS (7)
  - Sleep disorder [Fatal]
  - Restlessness [Fatal]
  - Hallucination [Fatal]
  - Death [Fatal]
  - Product use issue [Fatal]
  - Fall [Fatal]
  - Aggression [Fatal]

NARRATIVE: CASE EVENT DATE: 20171127
